FAERS Safety Report 8737943 (Version 6)
Quarter: 2013Q2

REPORT INFORMATION
  Report Type: Spontaneous
  Country: US (occurrence: US)
  Receive Date: 20120823
  Receipt Date: 20130430
  Transmission Date: 20140414
  Serious: Yes (Hospitalization, Disabling, Other)
  Sender: FDA-Public Use
  Company Number: US-009507513-1208USA004434

PATIENT
  Sex: Female
  Weight: 77.55 kg

DRUGS (15)
  1. FOSAMAX [Suspect]
     Indication: OSTEOPOROSIS
     Dosage: UNK , UNK
     Route: 048
     Dates: start: 200306, end: 2009
  2. FOSAMAX [Suspect]
     Dosage: 70 MG, UNK
     Route: 048
  3. FOSAMAX [Suspect]
     Dosage: 70 MG, QW
     Route: 048
  4. FOSAMAX PLUS D [Suspect]
     Dosage: UNK
     Route: 048
     Dates: start: 2003, end: 2009
  5. FOSAMAX [Suspect]
     Dosage: UNK
     Route: 048
     Dates: start: 2003, end: 2009
  6. ALENDRONATE SODIUM [Suspect]
     Dosage: UNK
     Dates: start: 20090404, end: 20100205
  7. ASPIRIN [Concomitant]
     Dosage: 81 MG, QD
  8. FERRO-SEQUELS [Concomitant]
     Dosage: UNK, BID
  9. PROTONIX [Concomitant]
     Dosage: 40 MG, QD
  10. LORTAB [Concomitant]
     Dosage: UNK, PRN
  11. TUMS [Concomitant]
     Dosage: UNK, PRN
  12. CALCIUM (UNSPECIFIED) (+) VITAMIN D (UNSPECIFIED) [Concomitant]
     Dosage: 1200MG-400UNITS,QD
     Route: 048
     Dates: start: 1982
  13. OMEGA-3 MARINE TRIGLYCERIDES [Concomitant]
     Dosage: UNK
     Dates: start: 1982
  14. ASCORBIC ACID [Concomitant]
     Dosage: 500 MG, QD
     Route: 048
     Dates: start: 1982
  15. CALCIUM (UNSPECIFIED) [Concomitant]
     Indication: OSTEOPOROSIS
     Dosage: 600 MG, UNK

REACTIONS (51)
  - Femur fracture [Not Recovered/Not Resolved]
  - Low turnover osteopathy [Not Recovered/Not Resolved]
  - Intramedullary rod insertion [Unknown]
  - Surgery [Unknown]
  - Bunion operation [Unknown]
  - Hypermagnesaemia [Unknown]
  - Rotator cuff repair [Unknown]
  - Knee arthroplasty [Unknown]
  - Intraocular lens implant [Unknown]
  - Femur fracture [Unknown]
  - Femur fracture [Unknown]
  - Femur fracture [Unknown]
  - Cardiomegaly [Unknown]
  - Muscle strain [Unknown]
  - Aortic disorder [Unknown]
  - Osteoarthritis [Not Recovered/Not Resolved]
  - Ligament sprain [Unknown]
  - Haemorrhagic anaemia [Unknown]
  - Arthropathy [Unknown]
  - Arthropathy [Unknown]
  - Dental prosthesis user [Unknown]
  - Dental caries [Unknown]
  - Foot deformity [Unknown]
  - Spinal osteoarthritis [Unknown]
  - Osteoarthritis [Unknown]
  - Diverticulum [Unknown]
  - Hyperlipidaemia [Not Recovered/Not Resolved]
  - Cataract [Unknown]
  - Rotator cuff syndrome [Unknown]
  - Osteoarthritis [Unknown]
  - Synovitis [Unknown]
  - Foreign body [Unknown]
  - Rotator cuff repair [Unknown]
  - Removal of foreign body from joint [Unknown]
  - Debridement [Unknown]
  - Shoulder arthroplasty [Unknown]
  - Urinary tract infection [Unknown]
  - Inappropriate schedule of drug administration [Unknown]
  - Rotator cuff syndrome [Unknown]
  - Osteopenia [Unknown]
  - Rhinitis seasonal [Unknown]
  - Spinal compression fracture [Unknown]
  - Muscle strain [Unknown]
  - Spondylolisthesis [Unknown]
  - Anxiety [Unknown]
  - Osteoarthritis [Unknown]
  - Arthralgia [Unknown]
  - Pain in extremity [Unknown]
  - Gastrooesophageal reflux disease [Not Recovered/Not Resolved]
  - Overdose [Unknown]
  - Pain in extremity [Unknown]
